FAERS Safety Report 16421216 (Version 1)
Quarter: 2019Q2

REPORT INFORMATION
  Report Type: Spontaneous
  Country: US (occurrence: US)
  Receive Date: 20190612
  Receipt Date: 20190612
  Transmission Date: 20190711
  Serious: No
  Sender: FDA-Public Use
  Company Number: US-GALDERMA-US18028470

PATIENT
  Age: 13 Year
  Sex: Female

DRUGS (3)
  1. PROACTIV GREEN TEA MOISTURIZER [Concomitant]
     Active Substance: COSMETICS
     Route: 061
     Dates: start: 20180530, end: 20180604
  2. PROACTIV MD ADAPALENE ACNE TREATMENT [Suspect]
     Active Substance: ADAPALENE
     Indication: PRODUCT USED FOR UNKNOWN INDICATION
     Dosage: 0.1%
     Route: 061
     Dates: start: 20180530, end: 20180604
  3. SINGULAIR [Concomitant]
     Active Substance: MONTELUKAST SODIUM

REACTIONS (4)
  - Dry skin [Recovering/Resolving]
  - Skin ulcer [Recovering/Resolving]
  - Skin wrinkling [Recovering/Resolving]
  - Adverse reaction [Recovering/Resolving]

NARRATIVE: CASE EVENT DATE: 20180602
